FAERS Safety Report 21265778 (Version 1)
Quarter: 2022Q3

REPORT INFORMATION
  Report Type: Spontaneous
  Country: US (occurrence: None)
  Receive Date: 20220826
  Receipt Date: 20220826
  Transmission Date: 20221027
  Serious: Yes (Hospitalization)
  Sender: FDA-Public Use
  Company Number: None

PATIENT
  Age: 76 Year
  Sex: Male

DRUGS (2)
  1. WARFARIN [Suspect]
     Active Substance: WARFARIN
     Indication: Atrial fibrillation
     Dates: start: 20131025
  2. WARFARIN [Suspect]
     Active Substance: WARFARIN
     Indication: Mitral valve repair

REACTIONS (5)
  - Anaemia [None]
  - Upper gastrointestinal haemorrhage [None]
  - Therapy interrupted [None]
  - Haemorrhage [None]
  - Gastric haemorrhage [None]

NARRATIVE: CASE EVENT DATE: 20220412
